FAERS Safety Report 7389689-5 (Version None)
Quarter: 2011Q2

REPORT INFORMATION
  Report Type: 
  Country: None (occurrence: None)
  Receive Date: 20110401
  Receipt Date: 20110324
  Transmission Date: 20111010
  Serious: Yes (Hospitalization, Disabling, Other)
  Sender: FDA-Public Use
  Company Number: US-MERCK-0805USA00898

PATIENT
  Age: 56 Year
  Sex: Female
  Weight: 60 kg

DRUGS (4)
  1. [THERAPY UNSPECIFIED] [Concomitant]
     Indication: HYPERTENSION
     Route: 065
     Dates: start: 19980101
  2. FOSAMAX [Suspect]
     Route: 048
     Dates: end: 20060624
  3. [THERAPY UNSPECIFIED] [Concomitant]
     Indication: BLOOD CHOLESTEROL INCREASED
     Route: 065
     Dates: start: 19980101
  4. FOSAMAX [Suspect]
     Indication: OSTEOPOROSIS
     Route: 048
     Dates: start: 20000501, end: 20060601

REACTIONS (16)
  - GASTROOESOPHAGEAL REFLUX DISEASE [None]
  - FEMUR FRACTURE [None]
  - MUSCULOSKELETAL DISORDER [None]
  - NECK MASS [None]
  - PHARYNGITIS [None]
  - LYMPHADENOPATHY [None]
  - CHEST PAIN [None]
  - DECREASED APPETITE [None]
  - OROPHARYNGEAL PAIN [None]
  - BACK PAIN [None]
  - BACK DISORDER [None]
  - OSTEONECROSIS OF JAW [None]
  - ARTHRALGIA [None]
  - HUMERUS FRACTURE [None]
  - ABDOMINAL PAIN LOWER [None]
  - JOINT EFFUSION [None]
